FAERS Safety Report 10103498 (Version 1)
Quarter: 2014Q2

REPORT INFORMATION
  Report Type: Spontaneous
  Country: US (occurrence: US)
  Receive Date: 20140424
  Receipt Date: 20140424
  Transmission Date: 20141212
  Serious: No
  Sender: FDA-Public Use
  Company Number: US-BRISTOL-MYERS SQUIBB COMPANY-20464400

PATIENT
  Age: 72 Year
  Sex: Male

DRUGS (4)
  1. ELIQUIS [Suspect]
     Indication: ATRIAL FIBRILLATION
     Dosage: 2.5MG,LOT#:3F76862A,EXP.DATE: JUL2016
     Dates: start: 20130315
  2. LISINOPRIL [Concomitant]
  3. HCTZ [Concomitant]
     Dosage: DOSE REDUCED TO 12.5MG
     Dates: start: 201402
  4. AMLODIPINE [Concomitant]

REACTIONS (2)
  - Blood glucose increased [Unknown]
  - Circumstance or information capable of leading to medication error [Unknown]
